FAERS Safety Report 9526252 (Version 6)
Quarter: 2014Q2

REPORT INFORMATION
  Report Type: Report from Study
  Country: AR (occurrence: AR)
  Receive Date: 20130916
  Receipt Date: 20140607
  Transmission Date: 20141212
  Serious: Yes (Other)
  Sender: FDA-Public Use
  Company Number: PHHY2013AR101620

PATIENT
  Age: 60 Year
  Sex: Female

DRUGS (4)
  1. GILENYA [Suspect]
     Indication: MULTIPLE SCLEROSIS
     Dosage: 1 DF, QD
     Route: 048
     Dates: start: 20130717
  2. ALPLAX [Concomitant]
  3. PROLIA [Concomitant]
     Indication: OSTEOPOROSIS
  4. NICOTINELL//NICOTINE [Concomitant]
     Indication: SMOKING CESSATION THERAPY
     Dosage: 0.5 TAB, QD
     Route: 048

REACTIONS (17)
  - Blood cholesterol increased [Recovering/Resolving]
  - White blood cell count decreased [Not Recovered/Not Resolved]
  - Aspartate aminotransferase increased [Recovering/Resolving]
  - Alanine aminotransferase increased [Recovering/Resolving]
  - Lymphocyte count decreased [Recovering/Resolving]
  - Fatigue [Unknown]
  - Weight increased [Unknown]
  - Blood count abnormal [Recovering/Resolving]
  - Anaemia [Recovering/Resolving]
  - Memory impairment [Recovering/Resolving]
  - Tremor [Recovering/Resolving]
  - Muscle spasticity [Not Recovered/Not Resolved]
  - Depression [Unknown]
  - Somnolence [Recovered/Resolved]
  - Anxiety [Unknown]
  - Blood glucose abnormal [Unknown]
  - Gait disturbance [Unknown]
